FAERS Safety Report 25918821 (Version 1)
Quarter: 2025Q4

REPORT INFORMATION
  Report Type: Spontaneous
  Country: US (occurrence: US)
  Receive Date: 20251014
  Receipt Date: 20251014
  Transmission Date: 20260118
  Serious: No
  Sender: KALVISTA PHARMACEUTICALS
  Company Number: US-KP-00052

PATIENT
  Age: 42 Year
  Sex: Female

DRUGS (1)
  1. EKTERLY [Suspect]
     Active Substance: SEBETRALSTAT
     Indication: Hereditary angioedema
     Dosage: TAKING 1 TABLET (300 MG) AT THE FIRST SIGN OF SYMPTOMS AND THEN ANOTHER 1 TABLET (300 MG) ABOUT 3...
     Route: 048
     Dates: start: 20250801, end: 20250814

REACTIONS (2)
  - Hereditary angioedema [Unknown]
  - Incorrect dose administered [Unknown]
